FAERS Safety Report 19169332 (Version 1)
Quarter: 2021Q2

REPORT INFORMATION
  Report Type: Spontaneous
  Country: US (occurrence: US)
  Receive Date: 20210422
  Receipt Date: 20210422
  Transmission Date: 20210717
  Serious: No
  Sender: FDA-Public Use
  Company Number: US-009507513-2103USA006737

PATIENT
  Age: 54 Year
  Sex: Female

DRUGS (6)
  1. PEGINTRON [Suspect]
     Active Substance: PEGINTERFERON ALFA-2B
     Indication: ROSAI-DORFMAN SYNDROME
     Dosage: 1.5 MICROGRAM PER KILOGRAM, QW
  2. PREDNISONE. [Concomitant]
     Active Substance: PREDNISONE
     Indication: RETINAL INFILTRATES
     Dosage: TAPERED TO 10 MG/DAY OVER A 3?MONTH PERIOD
     Route: 048
  3. PREDNISONE. [Concomitant]
     Active Substance: PREDNISONE
     Indication: UVEITIS
     Dosage: 80 MG/DAY (1 MG/KG)
     Route: 048
  4. PREDNISONE. [Concomitant]
     Active Substance: PREDNISONE
     Dosage: MONITORED AT PREDNISONE OF 2.5 MG/DAY
     Route: 048
  5. PREDNISONE. [Concomitant]
     Active Substance: PREDNISONE
     Dosage: MAINTAINED ON LOW DOSE ORAL PREDNISONE (2.5?10 MG DAILY)
     Route: 048
  6. PREDNISONE. [Concomitant]
     Active Substance: PREDNISONE
     Dosage: RE?INITIATED AT 60 MG/DAY
     Route: 048

REACTIONS (1)
  - Off label use [Unknown]
